FAERS Safety Report 25330374 (Version 1)
Quarter: 2025Q2

REPORT INFORMATION
  Report Type: Spontaneous
  Country: US (occurrence: US)
  Receive Date: 20250519
  Receipt Date: 20250519
  Transmission Date: 20250717
  Serious: No
  Sender: LEADING PHARMA
  Company Number: US-LEADINGPHARMA-US-2025LEASPO00085

PATIENT
  Age: 49 Year
  Sex: Female

DRUGS (1)
  1. OXYBUTYNIN CHLORIDE [Suspect]
     Active Substance: OXYBUTYNIN CHLORIDE
     Indication: Night sweats
     Route: 065

REACTIONS (6)
  - Brain fog [Unknown]
  - Irritability [Unknown]
  - Hyperphagia [Unknown]
  - Feeling abnormal [Unknown]
  - Pain [Unknown]
  - Product use in unapproved indication [Unknown]
